FAERS Safety Report 14898635 (Version 1)
Quarter: 2018Q2

REPORT INFORMATION
  Report Type: Spontaneous
  Country: US (occurrence: US)
  Receive Date: 20180515
  Receipt Date: 20180515
  Transmission Date: 20180711
  Serious: No
  Sender: FDA-Public Use
  Company Number: US-ANIPHARMA-2018-US-006732

PATIENT
  Age: 57 Year
  Sex: Male

DRUGS (3)
  1. CANDESARTAN CILEXETIL. [Suspect]
     Active Substance: CANDESARTAN CILEXETIL
     Indication: HYPERTENSION
     Dosage: 16 MG, QD (EVERY MORNING)
     Route: 048
  2. AMLODIPINE [Suspect]
     Active Substance: AMLODIPINE BESYLATE
     Dosage: 5 MG, QD (EVERY NIGHT)
     Route: 065
     Dates: start: 20171111
  3. AMINOLEBAN EN POWDER [Suspect]
     Active Substance: AMINO ACIDS
     Dosage: 50 MG, BID (TWICE A DAY)
     Route: 065
     Dates: start: 20180105, end: 20180106

REACTIONS (3)
  - Nausea [Recovered/Resolved]
  - Asthenia [Recovered/Resolved]
  - Vomiting [Recovered/Resolved]

NARRATIVE: CASE EVENT DATE: 20180105
